FAERS Safety Report 5085248-8 (Version None)
Quarter: 2006Q3

REPORT INFORMATION
  Report Type: 
  Country: None (occurrence: None)
  Receive Date: 20060731
  Receipt Date: 20050802
  Transmission Date: 20061208
  Serious: Yes (Other)
  Sender: FDA-Public Use
  Company Number: 200511093BWH

PATIENT
  Age: 100 Year
  Sex: Female
  Weight: 55.7924 kg

DRUGS (1)
  1. AVELOX [Suspect]
     Indication: PNEUMONIA

REACTIONS (2)
  - EXTRAVASATION [None]
  - INJECTION SITE REACTION [None]
